FAERS Safety Report 17616235 (Version 1)
Quarter: 2020Q1

REPORT INFORMATION
  Report Type: Spontaneous
  Country: US (occurrence: US)
  Receive Date: 20200331
  Receipt Date: 20200331
  Transmission Date: 20200409
  Serious: No
  Sender: FDA-Public Use
  Company Number: None

PATIENT
  Age: 69 Year
  Sex: Male

DRUGS (2)
  1. EPCLUSA [Suspect]
     Active Substance: SOFOSBUVIR\VELPATASVIR
     Indication: HEPATITIS C
     Route: 048
     Dates: start: 202002
  2. YUPELRI [Concomitant]
     Active Substance: REVEFENACIN

REACTIONS (3)
  - Musculoskeletal chest pain [None]
  - Dyspnoea [None]
  - Dry eye [None]

NARRATIVE: CASE EVENT DATE: 20200331
